FAERS Safety Report 5948928-5 (Version None)
Quarter: 2008Q4

REPORT INFORMATION
  Report Type: 
  Country: None (occurrence: None)
  Receive Date: 20081111
  Receipt Date: 20081103
  Transmission Date: 20090506
  Serious: Yes (Hospitalization)
  Sender: FDA-Public Use
  Company Number: DK-PFIZER INC-2008089800

PATIENT
  Age: 73 Year
  Sex: Female

DRUGS (7)
  1. GENOTROPIN [Suspect]
     Indication: HYPOPITUITARISM
     Dates: start: 19990812
  2. DESMOPRESSIN ACETATE [Concomitant]
  3. LOPID [Concomitant]
  4. ACETYLSALICYLIC ACID SRT [Concomitant]
  5. HYDROCORTISONE [Concomitant]
  6. ELTROXIN [Concomitant]
  7. INSULIN MIXTARD [Concomitant]
     Indication: TYPE 1 DIABETES MELLITUS
     Dates: start: 20030101

REACTIONS (1)
  - BILE DUCT STENOSIS [None]
